FAERS Safety Report 6271416-6 (Version None)
Quarter: 2009Q3

REPORT INFORMATION
  Report Type: 
  Country: None (occurrence: None)
  Receive Date: 20090717
  Receipt Date: 20090708
  Transmission Date: 20100115
  Serious: Yes (Other)
  Sender: FDA-Public Use
  Company Number: GB-JNJFOC-20090702776

PATIENT
  Age: 71 Year
  Sex: Male

DRUGS (6)
  1. REMICADE [Suspect]
     Indication: RHEUMATOID ARTHRITIS
     Route: 042
  2. METHOTREXATE [Concomitant]
  3. PREDNISOLONE [Concomitant]
  4. FLUOXETINE HCL [Concomitant]
  5. FOLIC ACID [Concomitant]
  6. TEMAZEPAM [Concomitant]

REACTIONS (1)
  - BLADDER NEOPLASM [None]
